FAERS Safety Report 8070847-1 (Version None)
Quarter: 2012Q1

REPORT INFORMATION
  Report Type: 
  Country: None (occurrence: None)
  Receive Date: 20120125
  Receipt Date: 20120118
  Transmission Date: 20120608
  Serious: Yes (Hospitalization)
  Sender: FDA-Public Use
  Company Number: GB-VIIV HEALTHCARE LIMITED-B0776079A

PATIENT
  Sex: Female

DRUGS (5)
  1. ANTI-TUBERCULOSIS MEDICATION [Concomitant]
     Indication: TUBERCULOSIS
     Route: 065
  2. LAMIVUDINE (EPIVIR HBV) [Suspect]
     Indication: HIV INFECTION
     Route: 065
  3. RITONAVIR [Suspect]
     Indication: HIV INFECTION
     Dosage: 100MG PER DAY
     Route: 065
  4. RALTEGRAVIR [Suspect]
     Indication: HIV INFECTION
     Route: 065
  5. PREZISTA [Suspect]
     Indication: HIV INFECTION
     Dosage: 800MG PER DAY
     Route: 048

REACTIONS (3)
  - RASH [None]
  - BLOOD HIV RNA INCREASED [None]
  - CD4 LYMPHOCYTES DECREASED [None]
